FAERS Safety Report 9148064 (Version 1)
Quarter: 2013Q1

REPORT INFORMATION
  Report Type: Spontaneous
  Country: US (occurrence: US)
  Receive Date: 20130308
  Receipt Date: 20130308
  Transmission Date: 20140127
  Serious: No
  Sender: FDA-Public Use
  Company Number: US-009507513-1303USA002266

PATIENT
  Sex: Male

DRUGS (5)
  1. VICTRELIS [Suspect]
     Indication: HEPATITIS C
     Dosage: 800 MG, TID
     Route: 048
  2. PROMACTA [Concomitant]
  3. NEUPOGEN [Concomitant]
  4. PEGASYS [Concomitant]
     Dosage: UNK
     Dates: start: 2012
  5. RIBAPAK [Concomitant]
     Dosage: UNK
     Dates: start: 2012

REACTIONS (2)
  - Fatigue [Not Recovered/Not Resolved]
  - Rash [Not Recovered/Not Resolved]
